FAERS Safety Report 7297319-6 (Version None)
Quarter: 2011Q1

REPORT INFORMATION
  Report Type: 
  Country: None (occurrence: None)
  Receive Date: 20110216
  Receipt Date: 20110208
  Transmission Date: 20110831
  Serious: Yes (Hospitalization)
  Sender: FDA-Public Use
  Company Number: ES-BAXTER-2011BH003298

PATIENT
  Age: 40 Year
  Sex: Male
  Weight: 94 kg

DRUGS (5)
  1. ONDANSETRON [Concomitant]
     Indication: VOMITING
     Route: 042
     Dates: start: 20100302, end: 20100312
  2. BUSULFAN [Suspect]
     Indication: MYELODYSPLASTIC SYNDROME
     Route: 042
     Dates: start: 20100302, end: 20100305
  3. CYCLOPHOSPHAMIDE [Suspect]
     Indication: MYELODYSPLASTIC SYNDROME
     Route: 042
     Dates: start: 20100310, end: 20100311
  4. HYDROCORTISONE [Concomitant]
     Indication: STEM CELL TRANSPLANT
     Route: 042
     Dates: start: 20100311, end: 20100313
  5. ITRACONAZOLE [Concomitant]
     Indication: PROPHYLAXIS
     Route: 042
     Dates: start: 20100301, end: 20100303

REACTIONS (3)
  - HYPOMAGNESAEMIA [None]
  - CYSTITIS HAEMORRHAGIC [None]
  - RENAL TUBULAR DISORDER [None]
